FAERS Safety Report 20698258 (Version 1)
Quarter: 2022Q2

REPORT INFORMATION
  Report Type: Spontaneous
  Country: US (occurrence: US)
  Receive Date: 20220412
  Receipt Date: 20220412
  Transmission Date: 20220721
  Serious: No
  Sender: FDA-Public Use
  Company Number: US-BION-010065

PATIENT
  Age: 55 Year
  Sex: Female

DRUGS (1)
  1. ALEVE [Suspect]
     Active Substance: NAPROXEN SODIUM
     Indication: Neck pain
     Dosage: DOSE USED 5
     Route: 048
     Dates: start: 20210929

REACTIONS (3)
  - Incorrect dose administered [Not Recovered/Not Resolved]
  - Product size issue [Unknown]
  - Product use in unapproved indication [Not Recovered/Not Resolved]
